FAERS Safety Report 7391824-X (Version None)
Quarter: 2011Q2

REPORT INFORMATION
  Report Type: 
  Country: None (occurrence: None)
  Receive Date: 20110404
  Receipt Date: 20110328
  Transmission Date: 20111010
  Serious: Yes (Death)
  Sender: FDA-Public Use
  Company Number: JP-PFIZER INC-2011071965

PATIENT
  Age: 75 Year
  Sex: Male

DRUGS (2)
  1. CELECOX [Suspect]
     Indication: RHEUMATOID ARTHRITIS
     Dosage: 100 MG, 2X/DAY
     Route: 048
     Dates: start: 20100906
  2. RHEUMATREX [Concomitant]
     Dosage: UNK
     Route: 048
     Dates: start: 20100913, end: 20101129

REACTIONS (1)
  - DEATH [None]
